FAERS Safety Report 13133216 (Version 1)
Quarter: 2017Q1

REPORT INFORMATION
  Report Type: Spontaneous
  Country: US (occurrence: US)
  Receive Date: 20170119
  Receipt Date: 20170119
  Transmission Date: 20170428
  Serious: No
  Sender: FDA-Public Use
  Company Number: None

PATIENT
  Age: 52 Year
  Sex: Male
  Weight: 72.19 kg

DRUGS (2)
  1. SILDENAFIL. [Suspect]
     Active Substance: SILDENAFIL
     Indication: ERECTILE DYSFUNCTION
     Dosage: 20 MG 1 TAB DAILY  1 DAILY BEFORE ACTIVITY. ORALLY.
     Route: 048
     Dates: start: 20150827, end: 20170111
  2. SILDENAFIL. [Suspect]
     Active Substance: SILDENAFIL
     Indication: BENIGN PROSTATIC HYPERPLASIA
     Dosage: 20 MG 1 TAB DAILY  1 DAILY BEFORE ACTIVITY. ORALLY.
     Route: 048
     Dates: start: 20150827, end: 20170111

REACTIONS (1)
  - Drug ineffective [None]
